FAERS Safety Report 12800928 (Version 1)
Quarter: 2016Q4

REPORT INFORMATION
  Report Type: Spontaneous
  Country: IT (occurrence: IT)
  Receive Date: 20161002
  Receipt Date: 20161002
  Transmission Date: 20170207
  Serious: Yes (Life-Threatening)
  Sender: FDA-Public Use
  Company Number: IT-SA-2016SA179281

PATIENT
  Age: 83 Year
  Sex: Male

DRUGS (8)
  1. CARDIOASPIRIN [Concomitant]
     Active Substance: ASPIRIN
     Indication: ATRIAL FIBRILLATION
  2. PLAVIX [Suspect]
     Active Substance: CLOPIDOGREL BISULFATE
     Indication: ATRIAL FIBRILLATION
     Route: 065
  3. NORVASC [Concomitant]
     Active Substance: AMLODIPINE BESYLATE
  4. LORAZEPAM. [Concomitant]
     Active Substance: LORAZEPAM
  5. AMIODARONE [Concomitant]
     Active Substance: AMIODARONE
  6. TORVAST [Concomitant]
     Active Substance: ATORVASTATIN
  7. PANTOPRAZOLE [Concomitant]
     Active Substance: PANTOPRAZOLE SODIUM
  8. FUROSEMIDE. [Concomitant]
     Active Substance: FUROSEMIDE

REACTIONS (1)
  - Pancytopenia [Recovering/Resolving]

NARRATIVE: CASE EVENT DATE: 20160421
